FAERS Safety Report 22332252 (Version 1)
Quarter: 2023Q2

REPORT INFORMATION
  Report Type: Report from Study
  Country: US (occurrence: US)
  Receive Date: 20230517
  Receipt Date: 20230517
  Transmission Date: 20230721
  Serious: Yes (Death, Life-Threatening, Other)
  Sender: FDA-Public Use
  Company Number: US-MYLANLABS-2023M1050747

PATIENT
  Age: 70 Year
  Sex: Female
  Weight: 131 kg

DRUGS (1)
  1. YUPELRI [Suspect]
     Active Substance: REVEFENACIN
     Indication: Chronic obstructive pulmonary disease
     Dosage: UNK (175MCG/ 3ML ONCE DAILY)
     Route: 055
     Dates: start: 20230410, end: 20230412

REACTIONS (3)
  - Pneumonitis [Fatal]
  - Mouth swelling [Fatal]
  - Pharyngeal swelling [Fatal]

NARRATIVE: CASE EVENT DATE: 20230410
